FAERS Safety Report 15810113 (Version 1)
Quarter: 2019Q1

REPORT INFORMATION
  Report Type: Spontaneous
  Country: US (occurrence: US)
  Receive Date: 20190111
  Receipt Date: 20190111
  Transmission Date: 20190417
  Serious: No
  Sender: FDA-Public Use
  Company Number: US-ROCHE-2144024

PATIENT
  Sex: Male
  Weight: 68.1 kg

DRUGS (3)
  1. RITUXAN [Suspect]
     Active Substance: RITUXIMAB
     Indication: B-CELL LYMPHOMA
     Dosage: 4 DIFFERENT CLINICAL TRIALS ;ONGOING: NO
     Route: 042
     Dates: start: 2009, end: 201712
  2. REVLIMID [Concomitant]
     Active Substance: LENALIDOMIDE
     Indication: B-CELL LYMPHOMA
     Route: 065
  3. KEYTRUDA [Concomitant]
     Active Substance: PEMBROLIZUMAB
     Indication: B-CELL LYMPHOMA
     Route: 065

REACTIONS (1)
  - Fatigue [Unknown]
